FAERS Safety Report 9378287 (Version 2)
Quarter: 2013Q3

REPORT INFORMATION
  Report Type: Spontaneous
  Country: UA (occurrence: UA)
  Receive Date: 20130701
  Receipt Date: 20130706
  Transmission Date: 20140515
  Serious: Yes (Other)
  Sender: FDA-Public Use
  Company Number: UA-US-EMD SERONO, INC.-7221196

PATIENT
  Age: 28 Year
  Sex: Female

DRUGS (1)
  1. CETROTIDE (CETRORELIX ACETATE FOR INJECTION) [Suspect]
     Indication: PRODUCT USED FOR UNKNOWN INDICATION
     Route: 058
     Dates: start: 20130606, end: 20130609

REACTIONS (1)
  - Drug ineffective [Unknown]
